FAERS Safety Report 5990577-7 (Version None)
Quarter: 2008Q4

REPORT INFORMATION
  Report Type: 
  Country: None (occurrence: None)
  Receive Date: 20081202
  Receipt Date: 20071126
  Transmission Date: 20090506
  Serious: Yes (Other)
  Sender: FDA-Public Use
  Company Number: WAES 0711USA04813

PATIENT
  Sex: Female

DRUGS (1)
  1. FOSAMAX [Suspect]
     Indication: BONE DENSITY DECREASED
     Dosage: PO
     Route: 047
     Dates: end: 20060601

REACTIONS (7)
  - ABSCESS ORAL [None]
  - ALOPECIA [None]
  - ORAL INFECTION [None]
  - OSTEONECROSIS [None]
  - PAIN [None]
  - TOOTH LOSS [None]
  - ULCER HAEMORRHAGE [None]
